FAERS Safety Report 23958357 (Version 4)
Quarter: 2025Q1

REPORT INFORMATION
  Report Type: Report from Study
  Country: US (occurrence: US)
  Receive Date: 20240610
  Receipt Date: 20250107
  Transmission Date: 20250409
  Serious: No
  Sender: ASTELLAS
  Company Number: US-ASTELLAS-2024US016550

PATIENT
  Age: 76 Year
  Sex: Female

DRUGS (2)
  1. AVACINCAPTAD PEGOL [Suspect]
     Active Substance: AVACINCAPTAD PEGOL
     Indication: Dry age-related macular degeneration
     Dosage: 2 MG, MONTHLY (OS/LEFT EYE)
     Dates: start: 202405, end: 202405
  2. AVACINCAPTAD PEGOL [Suspect]
     Active Substance: AVACINCAPTAD PEGOL
     Dosage: 2 MG, MONTHLY (OS/LEFT EYE)
     Dates: start: 20240604, end: 20240604

REACTIONS (4)
  - Inadequate aseptic technique in use of product [Unknown]
  - Intercepted product administration error [Unknown]
  - Needle issue [Unknown]
  - Product container issue [Unknown]

NARRATIVE: CASE EVENT DATE: 20240604
